FAERS Safety Report 11511262 (Version 1)
Quarter: 2015Q3

REPORT INFORMATION
  Report Type: Spontaneous
  Country: GB (occurrence: GB)
  Receive Date: 20150915
  Receipt Date: 20150915
  Transmission Date: 20151125
  Serious: Yes (Other)
  Sender: FDA-Public Use
  Company Number: GB-GLAXOSMITHKLINE-GB2015129102

PATIENT
  Age: 68 Year
  Sex: Female
  Weight: 74 kg

DRUGS (15)
  1. BISOPROLOL [Concomitant]
     Active Substance: BISOPROLOL
     Dates: start: 20141219
  2. ERYTHROMYCIN. [Concomitant]
     Active Substance: ERYTHROMYCIN
     Dates: start: 20150722, end: 20150729
  3. PARACETAMOL [Concomitant]
     Active Substance: ACETAMINOPHEN
     Dosage: TAKE ONE OR TWO FOUR TIMES A DAY WHEN REQUIRED
     Dates: start: 20090311
  4. SIMVASTATIN. [Concomitant]
     Active Substance: SIMVASTATIN
     Dosage: TAKEN AT NIGHT
     Dates: start: 20070807
  5. FOLIC ACID. [Concomitant]
     Active Substance: FOLIC ACID
     Dates: start: 20100811
  6. OMEPRAZOLE. [Concomitant]
     Active Substance: OMEPRAZOLE
     Dates: start: 20100730
  7. SERETIDE [Concomitant]
     Active Substance: FLUTICASONE FUROATE\SALMETEROL XINAFOATE
     Route: 055
     Dates: start: 20140217
  8. PREDNISOLONE. [Concomitant]
     Active Substance: PREDNISOLONE
     Dates: start: 20150722, end: 20150819
  9. SALBUTAMOL [Concomitant]
     Active Substance: ALBUTEROL
     Route: 055
     Dates: start: 20011227
  10. TIOTROPIUM [Concomitant]
     Active Substance: TIOTROPIUM
     Route: 055
     Dates: start: 20110218
  11. RELVAR ELLIPTA [Suspect]
     Active Substance: FLUTICASONE FUROATE\VILANTEROL TRIFENATATE
     Indication: PRODUCT USED FOR UNKNOWN INDICATION
     Dates: start: 20150722
  12. COCODAMOL [Concomitant]
     Active Substance: ACETAMINOPHEN\CODEINE PHOSPHATE
     Dosage: TAKE 1 OR 2
     Dates: start: 20111216
  13. ASPIRIN. [Concomitant]
     Active Substance: ASPIRIN
     Dates: start: 20070924
  14. DOMPERIDONE [Concomitant]
     Active Substance: DOMPERIDONE
     Dosage: ONE TABLET THREE OR FOUR TIMES A DAY AS NEEDED
     Dates: start: 20140912
  15. DOXYCYCLINE. [Concomitant]
     Active Substance: DOXYCYCLINE
     Dosage: TWO NOW THEN ONE DAILY
     Dates: start: 20150825

REACTIONS (3)
  - Rash [Recovered/Resolved]
  - Contusion [Unknown]
  - Rash pustular [Recovered/Resolved]

NARRATIVE: CASE EVENT DATE: 20150722
